FAERS Safety Report 9842486 (Version 1)
Quarter: 2014Q1

REPORT INFORMATION
  Report Type: Spontaneous
  Country: US (occurrence: US)
  Receive Date: 20140124
  Receipt Date: 20140124
  Transmission Date: 20141002
  Serious: Yes (Other)
  Sender: FDA-Public Use
  Company Number: US-GILEAD-2011-0042764

PATIENT
  Sex: Female

DRUGS (1)
  1. RANEXA [Suspect]
     Indication: PRODUCT USED FOR UNKNOWN INDICATION
     Dates: start: 201107

REACTIONS (2)
  - Hallucination, visual [Recovered/Resolved]
  - Tremor [Recovered/Resolved]
